FAERS Safety Report 10664391 (Version 1)
Quarter: 2014Q4

REPORT INFORMATION
  Report Type: Spontaneous
  Country: US (occurrence: US)
  Receive Date: 20141219
  Receipt Date: 20141219
  Transmission Date: 20150529
  Serious: No
  Sender: FDA-Public Use
  Company Number: US-BIOGENIDEC-2014BI133668

PATIENT
  Age: 46 Year
  Sex: Female

DRUGS (2)
  1. TECFIDERA [Suspect]
     Active Substance: DIMETHYL FUMARATE
     Indication: MULTIPLE SCLEROSIS
     Route: 048
     Dates: start: 20141108
  2. BABY ASPIRIN [Concomitant]
     Active Substance: ASPIRIN
     Indication: PREMEDICATION

REACTIONS (8)
  - Eructation [Not Recovered/Not Resolved]
  - Hot flush [Recovered/Resolved]
  - Pruritus [Unknown]
  - Hypersomnia [Recovered/Resolved]
  - Rash macular [Not Recovered/Not Resolved]
  - Inappropriate schedule of drug administration [Recovered/Resolved]
  - Flushing [Recovered/Resolved]
  - Alopecia [Not Recovered/Not Resolved]

NARRATIVE: CASE EVENT DATE: 2014
